FAERS Safety Report 7935534-6 (Version None)
Quarter: 2011Q4

REPORT INFORMATION
  Report Type: 
  Country: None (occurrence: None)
  Receive Date: 20111123
  Receipt Date: 20111114
  Transmission Date: 20120403
  Serious: Yes (Other)
  Sender: FDA-Public Use
  Company Number: FR-BIOGENIDEC-2011BI044198

PATIENT
  Age: 41 Year
  Sex: Female

DRUGS (2)
  1. ANTI ALLERGIC DRUG NOS [Concomitant]
     Indication: ALLERGY PROPHYLAXIS
  2. TYSABRI [Suspect]
     Indication: MULTIPLE SCLEROSIS
     Dates: end: 20111114

REACTIONS (3)
  - CARDIAC ENZYMES INCREASED [None]
  - ANGIOEDEMA [None]
  - HYPERSENSITIVITY [None]
